FAERS Safety Report 14467611 (Version 1)
Quarter: 2018Q1

REPORT INFORMATION
  Report Type: Spontaneous
  Country: CN (occurrence: CN)
  Receive Date: 20180131
  Receipt Date: 20180131
  Transmission Date: 20180509
  Serious: Yes (Hospitalization, Other)
  Sender: FDA-Public Use
  Company Number: CN-MACLEODS PHARMACEUTICALS US LTD-MAC2018009021

PATIENT

DRUGS (2)
  1. CLOPIDOGREL [Suspect]
     Active Substance: CLOPIDOGREL BISULFATE
     Indication: TRANSIENT ISCHAEMIC ATTACK
     Dosage: 75 MG, QD
     Route: 065
  2. ASPIRIN. [Suspect]
     Active Substance: ASPIRIN
     Indication: TRANSIENT ISCHAEMIC ATTACK
     Dosage: 100 MG, QD
     Route: 065

REACTIONS (10)
  - Hemiplegia [Recovered/Resolved]
  - Neck pain [Recovered/Resolved]
  - Quadriplegia [Recovered/Resolved]
  - Urinary retention [Recovered/Resolved]
  - Spinal cord compression [Recovered/Resolved]
  - Muscular weakness [Recovered/Resolved]
  - Spinal epidural haematoma [Recovered/Resolved]
  - Asthenia [Not Recovered/Not Resolved]
  - Sensory loss [Recovered/Resolved]
  - Dyspnoea [Not Recovered/Not Resolved]
